FAERS Safety Report 9620016 (Version 1)
Quarter: 2013Q4

REPORT INFORMATION
  Report Type: Spontaneous
  Country: US (occurrence: US)
  Receive Date: 20131014
  Receipt Date: 20131014
  Transmission Date: 20140711
  Serious: No
  Sender: FDA-Public Use
  Company Number: US-PFIZER INC-2013293898

PATIENT
  Age: 86 Year
  Sex: Female
  Weight: 102 kg

DRUGS (4)
  1. LYRICA [Suspect]
     Indication: FIBROMYALGIA
     Dosage: UNK
     Dates: start: 2010
  2. LYRICA [Suspect]
     Dosage: DOSE INCREASED AND DECREASED SEVERAL TIMES ON UNKNOWN DATES
  3. LYRICA [Suspect]
     Dosage: 50 MG, 2X/DAY
  4. LYRICA [Suspect]
     Dosage: 50 MG, DAILY
     Dates: start: 2013

REACTIONS (2)
  - Intentional drug misuse [Unknown]
  - Dyskinesia [Not Recovered/Not Resolved]
